FAERS Safety Report 8808922 (Version 2)
Quarter: 2012Q4

REPORT INFORMATION
  Report Type: 
  Country: BE (occurrence: BE)
  Receive Date: 20120926
  Receipt Date: 20121030
  Transmission Date: 20130627
  Serious: Yes (Hospitalization, Other)
  Sender: FDA-Public Use
  Company Number: BE-ASTELLAS-2012US007995

PATIENT
  Age: 44 Year
  Sex: Female
  Weight: 62 kg

DRUGS (5)
  1. TARCEVA [Suspect]
     Indication: NON-SMALL CELL LUNG CANCER
     Dosage: 150 mg, UID/QD
     Route: 048
     Dates: start: 20120808
  2. DICLOFENAC [Concomitant]
     Indication: PAIN
     Dosage: 75 mg, bid
     Route: 065
     Dates: start: 20120604
  3. PARACETAMOL [Concomitant]
     Indication: PAIN
     Dosage: 500 mg, tid
     Route: 048
     Dates: start: 20120604
  4. MORPHINE HYDROCHLORIDE [Concomitant]
     Indication: ANALGESIC THERAPY
     Dosage: UNK
     Route: 065
  5. ZOMETA [Concomitant]
     Indication: METASTASES TO BONE
     Dosage: UNK
     Route: 065

REACTIONS (6)
  - Oesophageal disorder [Unknown]
  - Lung infection [Unknown]
  - Disease progression [Not Recovered/Not Resolved]
  - Rash [Recovering/Resolving]
  - Diarrhoea [Unknown]
  - Dry skin [Unknown]
